FAERS Safety Report 6785695-X (Version None)
Quarter: 2010Q2

REPORT INFORMATION
  Report Type: 
  Country: None (occurrence: None)
  Receive Date: 20100622
  Receipt Date: 20100622
  Transmission Date: 20101027
  Serious: Yes (Hospitalization)
  Sender: FDA-Public Use
  Company Number: None

PATIENT
  Age: 37 Year
  Sex: Female

DRUGS (2)
  1. ULTRAVIST 370 [Suspect]
     Indication: ABDOMINAL PAIN UPPER
     Dosage: 99 ML 1 IV
     Route: 042
     Dates: start: 20100609
  2. ULTRAVIST 370 [Suspect]
     Indication: NAUSEA
     Dosage: 99 ML 1 IV
     Route: 042
     Dates: start: 20100609

REACTIONS (9)
  - CHEST DISCOMFORT [None]
  - CONTRAST MEDIA ALLERGY [None]
  - CONTRAST MEDIA REACTION [None]
  - DYSPNOEA [None]
  - EAR PRURITUS [None]
  - ERYTHEMA [None]
  - HYPERSENSITIVITY [None]
  - PRURITUS [None]
  - THROAT TIGHTNESS [None]
